APPROVED DRUG PRODUCT: MARLISSA
Active Ingredient: ETHINYL ESTRADIOL; LEVONORGESTREL
Strength: 0.03MG;0.15MG
Dosage Form/Route: TABLET;ORAL-28
Application: A091452 | Product #001 | TE Code: AB
Applicant: GLENMARK PHARMACEUTICALS LTD
Approved: Feb 29, 2012 | RLD: No | RS: No | Type: RX